FAERS Safety Report 10431713 (Version 6)
Quarter: 2015Q2

REPORT INFORMATION
  Report Type: Spontaneous
  Country: CH (occurrence: None)
  Receive Date: 20140903
  Receipt Date: 20150424
  Transmission Date: 20150821
  Serious: Yes (Other)
  Sender: FDA-Public Use
  Company Number: 20140533

PATIENT
  Age: 23 Year
  Sex: Female
  Weight: 65 kg

DRUGS (1)
  1. FERINJECT [Suspect]
     Active Substance: FERRIC CARBOXYMALTOSE
     Indication: IRON DEFICIENCY ANAEMIA
     Dosage: 500 MG IN 250 CC 0.9%NACL?
     Route: 042
     Dates: start: 20140723, end: 20140723

REACTIONS (3)
  - Maternal exposure during pregnancy [None]
  - Hypotension [None]
  - Uterine contractions abnormal [None]

NARRATIVE: CASE EVENT DATE: 20140723
